FAERS Safety Report 12632878 (Version 2)
Quarter: 2016Q3

REPORT INFORMATION
  Report Type: Spontaneous
  Country: US (occurrence: US)
  Receive Date: 20160808
  Receipt Date: 20160808
  Transmission Date: 20161109
  Serious: No
  Sender: FDA-Public Use
  Company Number: US-BEH-2015057359

PATIENT
  Sex: Female
  Weight: 99 kg

DRUGS (16)
  1. HIZENTRA [Suspect]
     Active Substance: HUMAN IMMUNOGLOBULIN G
     Indication: IMMUNODEFICIENCY COMMON VARIABLE
     Route: 058
  2. NASACORT [Concomitant]
     Active Substance: TRIAMCINOLONE ACETONIDE
  3. PRILOSEC [Concomitant]
     Active Substance: OMEPRAZOLE MAGNESIUM
  4. ATIVAN [Concomitant]
     Active Substance: LORAZEPAM
  5. LIPITOR [Concomitant]
     Active Substance: ATORVASTATIN CALCIUM
  6. AMBIEN [Concomitant]
     Active Substance: ZOLPIDEM TARTRATE
  7. VITAMIN C [Concomitant]
     Active Substance: ASCORBIC ACID
  8. CYMBALTA [Concomitant]
     Active Substance: DULOXETINE HYDROCHLORIDE
  9. LIDOCAINE/PRILOCAINE [Concomitant]
     Active Substance: LIDOCAINE\PRILOCAINE
  10. LYRICA [Concomitant]
     Active Substance: PREGABALIN
  11. SEROQUEL [Concomitant]
     Active Substance: QUETIAPINE FUMARATE
  12. DIPHENHYDRAMINE. [Concomitant]
     Active Substance: DIPHENHYDRAMINE
  13. EPIPEN [Concomitant]
     Active Substance: EPINEPHRINE
  14. ALBUTEROL SULFATE. [Concomitant]
     Active Substance: ALBUTEROL SULFATE
  15. VITAMIN D2 [Concomitant]
     Active Substance: ERGOCALCIFEROL
  16. L-M-X [Concomitant]

REACTIONS (2)
  - Infusion site pruritus [Unknown]
  - Infusion site erythema [Unknown]
